FAERS Safety Report 25648725 (Version 1)
Quarter: 2025Q3

REPORT INFORMATION
  Report Type: Spontaneous
  Country: US (occurrence: US)
  Receive Date: 20250806
  Receipt Date: 20250806
  Transmission Date: 20251021
  Serious: No
  Sender: ABBVIE
  Company Number: US-ABBVIE-6399373

PATIENT
  Age: 77 Year

DRUGS (1)
  1. TEFLARO [Suspect]
     Active Substance: CEFTAROLINE FOSAMIL
     Indication: Product used for unknown indication
     Dosage: 600 MG EVERY 8 HOURS FOR 8 DAYS
     Route: 065

REACTIONS (1)
  - Off label use [Unknown]
